FAERS Safety Report 14340059 (Version 1)
Quarter: 2017Q4

REPORT INFORMATION
  Report Type: Spontaneous
  Country: AU (occurrence: AU)
  Receive Date: 20171231
  Receipt Date: 20171231
  Transmission Date: 20180321
  Serious: Yes (Hospitalization, Other)
  Sender: FDA-Public Use
  Company Number: AU-ROCHE-2044986

PATIENT
  Sex: Male

DRUGS (1)
  1. ESBRIET [Suspect]
     Active Substance: PIRFENIDONE
     Indication: IDIOPATHIC PULMONARY FIBROSIS
     Route: 065

REACTIONS (9)
  - Fatigue [Unknown]
  - Epigastric discomfort [Unknown]
  - Abdominal pain [Unknown]
  - Cardiac disorder [Unknown]
  - Fall [Unknown]
  - Flatulence [Unknown]
  - Weight decreased [Unknown]
  - Angina pectoris [Unknown]
  - Insomnia [Unknown]
